FAERS Safety Report 21506396 (Version 4)
Quarter: 2022Q4

REPORT INFORMATION
  Report Type: Report from Study
  Country: US (occurrence: US)
  Receive Date: 20221026
  Receipt Date: 20221122
  Transmission Date: 20230113
  Serious: Yes (Other)
  Sender: FDA-Public Use
  Company Number: US-NOVARTISTESTPH-NVSC2022US239615

PATIENT
  Sex: Male

DRUGS (1)
  1. ENTRESTO [Suspect]
     Active Substance: SACUBITRIL\VALSARTAN
     Indication: Product used for unknown indication
     Dosage: 1 DOSAGE FORM, BID (24/26 MG)
     Route: 048

REACTIONS (8)
  - Diabetes mellitus [Unknown]
  - Flatulence [Recovered/Resolved]
  - Hyperhidrosis [Recovered/Resolved]
  - Pollakiuria [Unknown]
  - Balance disorder [Unknown]
  - Chromaturia [Unknown]
  - Dehydration [Unknown]
  - Weight decreased [Unknown]
